FAERS Safety Report 8511467-1 (Version None)
Quarter: 2012Q3

REPORT INFORMATION
  Report Type: 
  Country: None (occurrence: None)
  Receive Date: 20120716
  Receipt Date: 20120703
  Transmission Date: 20120928
  Serious: Yes (Congenital Anomaly)
  Sender: FDA-Public Use
  Company Number: CA-FRI-1000037011

PATIENT

DRUGS (1)
  1. CELEXA [Suspect]
     Route: 064

REACTIONS (2)
  - SINGLE FUNCTIONAL KIDNEY [None]
  - FOETAL EXPOSURE DURING PREGNANCY [None]
